FAERS Safety Report 23728446 (Version 1)
Quarter: 2024Q2

REPORT INFORMATION
  Report Type: Spontaneous
  Country: US (occurrence: None)
  Receive Date: 20240409
  Receipt Date: 20240409
  Transmission Date: 20240716
  Serious: No
  Sender: FDA-Public Use
  Company Number: None

PATIENT
  Age: 73 Year
  Sex: Female
  Weight: 128.82 kg

DRUGS (12)
  1. ATORVASTATIN [Suspect]
     Active Substance: ATORVASTATIN
  2. DICLOFENAC [Concomitant]
  3. DULOXETIEN DR [Concomitant]
  4. TYLENOL 650MG [Concomitant]
  5. LISINORAIL [Concomitant]
  6. EPINEPHRINE [Concomitant]
  7. LEVOTHYROXINE [Concomitant]
  8. JARDIANCE [Concomitant]
  9. METOPROLOL [Concomitant]
  10. AMOXICILLIN [Concomitant]
  11. IMIQUIMOD CREAM PACKET [Concomitant]
  12. CEPHALEXIN [Concomitant]

REACTIONS (1)
  - Oral discomfort [None]

NARRATIVE: CASE EVENT DATE: 20240322
